FAERS Safety Report 11640972 (Version 1)
Quarter: 2015Q4

REPORT INFORMATION
  Report Type: Spontaneous
  Country: US (occurrence: None)
  Receive Date: 20151016
  Receipt Date: 20151016
  Transmission Date: 20160304
  Serious: Yes (Death)
  Sender: FDA-Public Use
  Company Number: None

PATIENT
  Age: 35 Year
  Sex: Female
  Weight: 86.7 kg

DRUGS (2)
  1. TOPOTECAN [Suspect]
     Active Substance: TOPOTECAN\TOPOTECAN HYDROCHLORIDE
     Dates: end: 20100804
  2. TAXOL [Suspect]
     Active Substance: PACLITAXEL
     Dates: end: 20100802

REACTIONS (5)
  - Disease progression [None]
  - Cardiac arrest [None]
  - Lung disorder [None]
  - Haematemesis [None]
  - Fall [None]

NARRATIVE: CASE EVENT DATE: 20100825
